FAERS Safety Report 5571757-1 (Version None)
Quarter: 2007Q4

REPORT INFORMATION
  Report Type: 
  Country: None (occurrence: None)
  Receive Date: 20071221
  Receipt Date: 20071218
  Transmission Date: 20080405
  Serious: Yes (Life-Threatening)
  Sender: FDA-Public Use
  Company Number: B0493569A

PATIENT
  Age: 38 Year
  Sex: Male
  Weight: 52 kg

DRUGS (5)
  1. ARIXTRA [Suspect]
     Indication: DRUG USE FOR UNKNOWN INDICATION
     Dosage: 2.5MG PER DAY
     Route: 058
     Dates: start: 20071019, end: 20071027
  2. CEFAMEZIN [Concomitant]
     Dosage: 1G TWICE PER DAY
     Route: 042
     Dates: start: 20071018, end: 20071021
  3. KENTAN [Concomitant]
     Route: 048
     Dates: start: 20071020, end: 20071024
  4. MUCOSTA [Concomitant]
     Route: 048
     Dates: start: 20071020, end: 20071024
  5. DASEN [Concomitant]
     Dosage: 10MG THREE TIMES PER DAY
     Route: 048
     Dates: start: 20071020, end: 20071026

REACTIONS (6)
  - ABDOMINAL PAIN UPPER [None]
  - FALL [None]
  - HEPATIC HAEMORRHAGE [None]
  - PYREXIA [None]
  - SHOCK [None]
  - VOMITING [None]
